FAERS Safety Report 25021927 (Version 1)
Quarter: 2025Q1

REPORT INFORMATION
  Report Type: Other
  Country: US (occurrence: None)
  Receive Date: 20250228
  Receipt Date: 20250228
  Transmission Date: 20250409
  Serious: Yes (Hospitalization, Other)
  Sender: AET PHARMA
  Company Number: US-AET-000014

PATIENT
  Age: 56 Year
  Sex: Male

DRUGS (11)
  1. POSACONAZOLE [Suspect]
     Active Substance: POSACONAZOLE
     Indication: Disseminated coccidioidomycosis
  2. AMLODIPINE [Concomitant]
     Active Substance: AMLODIPINE BESYLATE
     Indication: Product used for unknown indication
  3. ROSUVASTATIN [Concomitant]
     Active Substance: ROSUVASTATIN
     Indication: Product used for unknown indication
  4. FUROSEMIDE [Concomitant]
     Active Substance: FUROSEMIDE
     Indication: Product used for unknown indication
  5. VALSARTAN [Concomitant]
     Active Substance: VALSARTAN
     Indication: Product used for unknown indication
  6. TAMSULOSIN [Concomitant]
     Active Substance: TAMSULOSIN
     Indication: Product used for unknown indication
  7. GABAPENTIN [Concomitant]
     Active Substance: GABAPENTIN
     Indication: Pain management
     Dosage: 400 MG EVERY 6 H
  8. CLARITHROMYCIN AL [Concomitant]
     Indication: Helicobacter infection
  9. AMOXICILLIN [Concomitant]
     Active Substance: AMOXICILLIN
     Indication: Helicobacter infection
  10. PANTOPRAZOLE [Concomitant]
     Active Substance: PANTOPRAZOLE
     Indication: Helicobacter infection
  11. COSYNTROPIN [Concomitant]
     Active Substance: COSYNTROPIN
     Indication: ACTH stimulation test

REACTIONS (4)
  - Glucocorticoid deficiency [Not Recovered/Not Resolved]
  - Pseudoaldosteronism [Recovered/Resolved]
  - Drug level above therapeutic [Unknown]
  - Off label use [Unknown]
